FAERS Safety Report 6910600-2 (Version None)
Quarter: 2010Q3

REPORT INFORMATION
  Report Type: 
  Country: None (occurrence: None)
  Receive Date: 20100806
  Receipt Date: 20100730
  Transmission Date: 20110219
  Serious: Yes (Hospitalization)
  Sender: FDA-Public Use
  Company Number: DE-ROCHE-713407

PATIENT
  Sex: Male
  Weight: 67.1 kg

DRUGS (22)
  1. MYCOPHENOLATE MOFETIL [Suspect]
     Indication: RENAL TRANSPLANT
     Dosage: TEMPORARILY INTERRUPTED. LAST DOSE PRIOR TO SAE: 01 JULY 2010.2-O-2.
     Route: 048
     Dates: start: 20100522, end: 20100702
  2. MYCOPHENOLATE MOFETIL [Suspect]
     Route: 048
     Dates: start: 20100704
  3. MYCOPHENOLATE MOFETIL [Suspect]
     Route: 048
     Dates: start: 20100705
  4. MYCOPHENOLATE MOFETIL [Suspect]
     Dosage: AFTER DISCHARGE
     Route: 048
  5. THYMOGLOBULIN [Suspect]
     Indication: RENAL TRANSPLANT
     Dosage: DOSAGE FORM: INFUSION. LAST DOSE PRIOR TO SAE: 27 MAY 2010.
     Route: 042
     Dates: start: 20100522
  6. TACROLIMUS [Suspect]
     Indication: RENAL TRANSPLANT
     Dosage: LAST DOSE PRIOR TO SAE: 01 JULY 2010.
     Route: 048
     Dates: start: 20100522
  7. PREDNISOLONE [Suspect]
     Indication: RENAL TRANSPLANT
     Dosage: LAST DOSE PRIOR TO SAE: 29 MAY 2010.
     Route: 048
     Dates: start: 20100522
  8. BASILIXIMAB [Suspect]
     Indication: RENAL TRANSPLANT
     Dosage: INFUSION.LAST DOSE PRIOR TO SAE: 27 MAY 2010.
     Route: 042
     Dates: start: 20100522
  9. ATACAND [Concomitant]
     Dosage: 2DF/D BLOPRESS 16 MG
     Dates: start: 20080901
  10. PANTOZOL [Concomitant]
     Dosage: 1 DOSE DAILY
     Dates: start: 20090101
  11. BISOPROLOL [Concomitant]
     Dates: start: 20100527
  12. BISOPROLOL [Concomitant]
  13. DIGITOXIN [Concomitant]
     Dosage: TTD 1DOSE FORM /DAY  DRUG NAME DOGITOIN 0.07 (5D/WEEK)
     Dates: start: 20100528
  14. NEORECORMON [Concomitant]
     Dosage: TDD:5000 IE.
  15. ACETYLSALICYLIC ACID SRT [Concomitant]
     Dosage: ASS
     Dates: start: 20100101
  16. FLUVASTATIN [Concomitant]
     Dosage: DRUG REPORTED AS LOCAL.
     Dates: start: 20100523
  17. FURORESE [Concomitant]
  18. AMLODIPINE [Concomitant]
     Dosage: 2DF/D
  19. LIPOX RETARD [Concomitant]
     Dosage: 1DF/D LOCOL RETARD 80
  20. CALCITRIOL [Concomitant]
     Dosage: CACLITRIOL 0.25
  21. COTRIM [Concomitant]
     Dosage: COTRIM 480
  22. ARANESP [Concomitant]
     Dosage: ARANESP 60 MICRO/GR (1DF/WEEK)

REACTIONS (4)
  - CYTOMEGALOVIRUS INFECTION [None]
  - DIARRHOEA [None]
  - GENERAL PHYSICAL HEALTH DETERIORATION [None]
  - PYREXIA [None]
